FAERS Safety Report 20466671 (Version 1)
Quarter: 2022Q1

REPORT INFORMATION
  Report Type: Other
  Country: US (occurrence: US)
  Receive Date: 20220213
  Receipt Date: 20220213
  Transmission Date: 20220424
  Serious: Yes (Death)
  Sender: FDA-Public Use
  Company Number: US-Amarin Pharma, Inc.-2022AMR000045

PATIENT
  Age: 69 Year
  Sex: Male

DRUGS (3)
  1. VASCEPA [Suspect]
     Active Substance: ICOSAPENT ETHYL
     Indication: Coronary artery disease
     Route: 048
     Dates: start: 202011, end: 20211026
  2. VASCEPA [Suspect]
     Active Substance: ICOSAPENT ETHYL
     Indication: Diabetes mellitus
  3. ATORVASTATIN [Concomitant]
     Active Substance: ATORVASTATIN
     Indication: Product used for unknown indication

REACTIONS (2)
  - Bladder cancer stage IV [Fatal]
  - Underdose [Unknown]

NARRATIVE: CASE EVENT DATE: 20211026
